FAERS Safety Report 16939571 (Version 1)
Quarter: 2019Q4

REPORT INFORMATION
  Report Type: Spontaneous
  Country: CA (occurrence: CA)
  Receive Date: 20191021
  Receipt Date: 20191021
  Transmission Date: 20200122
  Serious: Yes (Hospitalization)
  Sender: FDA-Public Use
  Company Number: CA-TEVA-2019-CA-1123890

PATIENT
  Age: 61 Year
  Sex: Male

DRUGS (3)
  1. ABACAVIR. [Concomitant]
     Active Substance: ABACAVIR
  2. TENOFOVIR [Suspect]
     Active Substance: TENOFOVIR
     Indication: HIV INFECTION
     Dosage: 300 MILLIGRAM DAILY;
     Route: 048
  3. EFAVIRENZ. [Concomitant]
     Active Substance: EFAVIRENZ

REACTIONS (4)
  - Hip fracture [Recovered/Resolved]
  - Osteoporosis [Recovered/Resolved]
  - Osteopenia [Recovered/Resolved]
  - Spinal compression fracture [Recovered/Resolved]
